FAERS Safety Report 6970985-8 (Version None)
Quarter: 2010Q3

REPORT INFORMATION
  Report Type: 
  Country: None (occurrence: None)
  Receive Date: 20100908
  Receipt Date: 20100827
  Transmission Date: 20110219
  Serious: Yes (Hospitalization, Disabling, Other)
  Sender: FDA-Public Use
  Company Number: US-PFIZER INC-2010045815

PATIENT
  Sex: Male

DRUGS (2)
  1. CHANTIX [Suspect]
     Indication: SMOKING CESSATION THERAPY
     Dosage: TRIAL PACK
     Dates: start: 20080305, end: 20080307
  2. CHANTIX [Suspect]
     Dosage: STARTING MONTH PACK
     Dates: start: 20080307, end: 20090615

REACTIONS (9)
  - AGGRESSION [None]
  - ALCOHOL ABUSE [None]
  - ANGER [None]
  - ANXIETY [None]
  - DEPRESSION [None]
  - DRUG ABUSE [None]
  - HOMICIDAL IDEATION [None]
  - POST-TRAUMATIC STRESS DISORDER [None]
  - SUICIDAL IDEATION [None]
